FAERS Safety Report 8545258-2 (Version None)
Quarter: 2012Q3

REPORT INFORMATION
  Report Type: 
  Country: None (occurrence: None)
  Receive Date: 20120727
  Receipt Date: 20120719
  Transmission Date: 20120928
  Serious: Yes (Hospitalization, Other)
  Sender: FDA-Public Use
  Company Number: US-009507513-1104USA03723

PATIENT

DRUGS (18)
  1. FOSAMAX [Suspect]
     Indication: OSTEOPOROSIS
     Dates: start: 20000501
  2. PREMARIN [Concomitant]
     Dosage: 0.625 MG, QD
     Route: 048
  3. FOSAMAX [Suspect]
     Indication: OSTEOPENIA
     Dosage: 70 MG, UNK
     Route: 048
     Dates: start: 20080425, end: 20080709
  4. COREG [Concomitant]
     Dates: start: 20070102
  5. FOSAMAX PLUS D [Suspect]
     Indication: OSTEOPENIA
     Dosage: 70/2800
     Route: 048
     Dates: start: 20051230, end: 20070929
  6. FOSAMAX [Suspect]
     Dosage: 70 MG, UNK
     Route: 048
     Dates: start: 20081010, end: 20090611
  7. LOTENSION (BENAZEPRIL HYDROCHLORIDE) [Concomitant]
     Dosage: 40 MG, QD
     Route: 048
  8. FOSAMAX [Suspect]
     Dosage: 70 MG, UNK
     Route: 048
     Dates: start: 20091201
  9. MK-0152 [Concomitant]
     Dosage: 25 MG, QD
     Route: 048
  10. OMEGA-3 MARINE TRIGLYCERIDES [Concomitant]
     Dates: start: 20061212
  11. FOSAMAX [Suspect]
     Dosage: 70 MG, QW
     Route: 048
     Dates: start: 20010413, end: 20050920
  12. FOSAMAX [Suspect]
     Dosage: 70 MG, UNK
     Route: 048
     Dates: end: 20080214
  13. IRON (UNSPECIFIED) (+) VITAMINS (UNSPECIFIED) [Concomitant]
     Route: 048
  14. MICARDIS [Concomitant]
     Dosage: 40 MG, QD
     Route: 048
  15. DITROPAN XL [Concomitant]
     Indication: URINARY INCONTINENCE
     Dosage: 10 MG, QPM
  16. ASPIRIN [Concomitant]
     Dosage: 81 MG, QD
     Route: 048
  17. FOSAMAX [Suspect]
     Dosage: 10 MG, QD
     Route: 048
     Dates: start: 20001024, end: 20010412
  18. PRAVACHOL [Concomitant]
     Dosage: 40-80
     Route: 048

REACTIONS (38)
  - DRUG HYPERSENSITIVITY [None]
  - DEAFNESS NEUROSENSORY [None]
  - OVARIAN DISORDER [None]
  - MALAISE [None]
  - BLADDER DISORDER [None]
  - SPONDYLOLISTHESIS [None]
  - PAIN IN EXTREMITY [None]
  - JOINT CONTRACTURE [None]
  - STRESS [None]
  - DEPRESSION [None]
  - HAEMOGLOBIN DECREASED [None]
  - OSTEOARTHRITIS [None]
  - HYPERSENSITIVITY [None]
  - URINARY INCONTINENCE [None]
  - HAEMATOCRIT DECREASED [None]
  - ARTHROPATHY [None]
  - ARTHRITIS [None]
  - HYPERLIPIDAEMIA [None]
  - DEHYDRATION [None]
  - URGE INCONTINENCE [None]
  - HYDRONEPHROSIS [None]
  - GASTRITIS [None]
  - BREAST MASS [None]
  - FEMUR FRACTURE [None]
  - ANXIETY [None]
  - PARAESTHESIA [None]
  - URINARY TRACT INFECTION ENTEROCOCCAL [None]
  - URINARY TRACT INFECTION [None]
  - AUTOMATIC BLADDER [None]
  - BREAST DISORDER [None]
  - CORONARY ARTERY DISEASE [None]
  - DRUG INEFFECTIVE [None]
  - ALLERGY TO VACCINE [None]
  - CYSTOCELE [None]
  - RECTOCELE [None]
  - MUSCLE SPASMS [None]
  - CARDIAC MURMUR [None]
  - POLLAKIURIA [None]
